FAERS Safety Report 9494325 (Version 2)
Quarter: 2014Q1

REPORT INFORMATION
  Report Type: Report from Study
  Country: CA (occurrence: CA)
  Receive Date: 20130903
  Receipt Date: 20140108
  Transmission Date: 20141002
  Serious: Yes (Other)
  Sender: FDA-Public Use
  Company Number: CA-JNJFOC-20130816717

PATIENT
  Age: 66 Year
  Sex: Male

DRUGS (9)
  1. SIMPONI [Suspect]
     Indication: RHEUMATOID ARTHRITIS
     Route: 058
     Dates: start: 20130514
  2. MTX [Concomitant]
     Route: 058
  3. FOLIC ACID [Concomitant]
     Route: 048
  4. MELOXICAM [Concomitant]
     Route: 048
  5. METFORMIN [Concomitant]
     Route: 048
  6. CRESTOR [Concomitant]
     Route: 048
  7. RAMIPRIL [Concomitant]
     Route: 048
  8. AMLODIPINE [Concomitant]
     Route: 048
  9. BABY ASA [Concomitant]
     Route: 048

REACTIONS (1)
  - Ligament rupture [Recovered/Resolved]
